FAERS Safety Report 9097566 (Version 1)
Quarter: 2013Q1

REPORT INFORMATION
  Report Type: Spontaneous
  Country: CA (occurrence: CA)
  Receive Date: 20130212
  Receipt Date: 20130212
  Transmission Date: 20140127
  Serious: Yes (Hospitalization)
  Sender: FDA-Public Use
  Company Number: PHHY2012CA114809

PATIENT
  Age: 75 Year
  Sex: Male

DRUGS (11)
  1. GLEEVEC [Suspect]
     Indication: CHRONIC MYELOID LEUKAEMIA
     Dosage: 400 MG, DAILY
     Route: 048
     Dates: start: 201206, end: 20120705
  2. ASPIRIN [Concomitant]
     Dosage: 81 DF, UNK
  3. BISOPROLOLO [Concomitant]
     Dosage: 10 DF, UNK
  4. OLMESARTAN [Concomitant]
     Dosage: 20 DF, UNK
  5. FUROSEMIDE [Concomitant]
     Dosage: 40 DF, QD
  6. ROSUVASTATIN [Concomitant]
     Dosage: 5 DF, UNK
  7. METFORMIN [Concomitant]
     Dosage: 500 DF, BID
  8. VIT D [Concomitant]
     Dosage: 1000 U, QD
  9. HYDROXYUREA [Concomitant]
  10. KEPPRA [Concomitant]
     Dosage: 500 MG, BID
  11. ALLOPURINOL [Concomitant]

REACTIONS (15)
  - Haemangioma [Unknown]
  - Pallor [Recovered/Resolved]
  - Dyspnoea exertional [Unknown]
  - Hepatocellular injury [Unknown]
  - Alanine aminotransferase increased [Unknown]
  - Aspartate aminotransferase increased [Unknown]
  - Pyrexia [Recovered/Resolved]
  - Chills [Recovered/Resolved]
  - Malaise [Unknown]
  - Pulmonary oedema [Unknown]
  - Tremor [Unknown]
  - Renal failure acute [Unknown]
  - Blood creatinine increased [Unknown]
  - White blood cell count increased [Unknown]
  - Rash erythematous [Recovered/Resolved]
